FAERS Safety Report 5155222-1 (Version None)
Quarter: 2006Q4

REPORT INFORMATION
  Report Type: 
  Country: None (occurrence: None)
  Receive Date: 20061121
  Receipt Date: 20061110
  Transmission Date: 20070319
  Serious: Yes (Death)
  Sender: FDA-Public Use
  Company Number: US-KINGPHARMUSA00001-K200601457

PATIENT
  Age: 67 Year

DRUGS (3)
  1. ALTACE [Suspect]
     Route: 048
  2. WARFARIN SODIUM [Suspect]
     Route: 048
  3. AMLODIPINE [Suspect]
     Route: 048

REACTIONS (1)
  - COMPLETED SUICIDE [None]
